FAERS Safety Report 20165926 (Version 1)
Quarter: 2021Q4

REPORT INFORMATION
  Report Type: Spontaneous
  Country: CN (occurrence: CN)
  Receive Date: 20211209
  Receipt Date: 20211209
  Transmission Date: 20220303
  Serious: Yes (Hospitalization)
  Sender: FDA-Public Use
  Company Number: CN-BAXTER-2021BAX038655

PATIENT
  Age: 65 Year
  Sex: Male
  Weight: 49 kg

DRUGS (6)
  1. CYCLOPHOSPHAMIDE [Suspect]
     Active Substance: CYCLOPHOSPHAMIDE
     Indication: Non-Hodgkin^s lymphoma
     Route: 041
     Dates: start: 20211111, end: 20211113
  2. SODIUM CHLORIDE [Suspect]
     Active Substance: SODIUM CHLORIDE
     Indication: Medication dilution
     Dosage: 0.9% SODIUM CHLORIDE INJECTION 30ML, MICROPUMP INTRAVENOUS BOLUS INJECTION ONCE + VINDESINE SULFATE
     Route: 040
     Dates: start: 20211111, end: 20211111
  3. SODIUM CHLORIDE [Suspect]
     Active Substance: SODIUM CHLORIDE
     Dosage: 0.9% SODIUM CHLORIDE INJECTION 100ML QD + CYCLOPHOSPHAMIDE FOR INJECTION 0.4G ACCESSORY DRUG QD IVGT
     Route: 041
     Dates: start: 20211111, end: 20211113
  4. SODIUM CHLORIDE [Suspect]
     Active Substance: SODIUM CHLORIDE
     Dosage: 400 ML QD OF 0.9% SODIUM CHLORIDE INJECTION + ETOPOSIDE INJECTION 5 ML AUXILIARY DRUGS QD IVGTT
     Route: 041
     Dates: start: 20211111, end: 20211114
  5. VINDESINE SULFATE [Suspect]
     Active Substance: VINDESINE SULFATE
     Indication: Non-Hodgkin^s lymphoma
     Dosage: ROUTE OF ADMINISTRATION: MICROPUMP INTRAVENOUS BOLUS
     Route: 040
     Dates: start: 20211111, end: 20211111
  6. ETOPOSIDE [Suspect]
     Active Substance: ETOPOSIDE
     Indication: Non-Hodgkin^s lymphoma
     Route: 041
     Dates: start: 20211111, end: 20211114

REACTIONS (1)
  - Myelosuppression [Recovering/Resolving]

NARRATIVE: CASE EVENT DATE: 20211117
